FAERS Safety Report 13342457 (Version 1)
Quarter: 2017Q1

REPORT INFORMATION
  Report Type: Spontaneous
  Country: US (occurrence: US)
  Receive Date: 20170316
  Receipt Date: 20170316
  Transmission Date: 20170428
  Serious: Yes (Hospitalization, Other)
  Sender: FDA-Public Use
  Company Number: GXBR2017US001042

PATIENT
  Sex: Male

DRUGS (1)
  1. TIMOLOL GFS [Suspect]
     Active Substance: TIMOLOL MALEATE
     Indication: GLAUCOMA
     Dosage: UNK DF, UNK
     Route: 065

REACTIONS (6)
  - Bradycardia [Not Recovered/Not Resolved]
  - Polyp [Unknown]
  - Anaemia [Unknown]
  - Haemorrhage [Unknown]
  - Malaise [Unknown]
  - Asthenia [Unknown]
